FAERS Safety Report 14925832 (Version 4)
Quarter: 2020Q3

REPORT INFORMATION
  Report Type: Report from Study
  Country: US (occurrence: US)
  Receive Date: 20180522
  Receipt Date: 20200824
  Transmission Date: 20201102
  Serious: Yes (Hospitalization)
  Sender: FDA-Public Use
  Company Number: US-ACTELION-A-NJ2018-170927

PATIENT
  Age: 15 Year
  Sex: Female
  Weight: 46.26 kg

DRUGS (7)
  1. REVATIO [Concomitant]
     Active Substance: SILDENAFIL CITRATE
     Dosage: 40 MG, TID
     Dates: start: 20131230
  2. COUMADIN [Concomitant]
     Active Substance: WARFARIN SODIUM
  3. TRACLEER [Suspect]
     Active Substance: BOSENTAN
     Indication: PULMONARY ARTERIAL HYPERTENSION
     Dosage: 125 MG, BID
     Route: 048
     Dates: start: 20160803
  4. VELETRI [Suspect]
     Active Substance: EPOPROSTENOL
     Indication: PULMONARY ARTERIAL HYPERTENSION
     Dosage: 95 NG/KG, PER MIN
     Route: 042
  5. VELETRI [Suspect]
     Active Substance: EPOPROSTENOL
     Dosage: 82 NG/KG, PER MIN
     Route: 042
  6. VELETRI [Suspect]
     Active Substance: EPOPROSTENOL
     Dosage: 93 NG/KG, PER MIN
     Route: 042
  7. FLOLAN [Concomitant]
     Active Substance: EPOPROSTENOL SODIUM

REACTIONS (9)
  - Haemoptysis [Unknown]
  - Transplant evaluation [Unknown]
  - Condition aggravated [Unknown]
  - Oxygen saturation decreased [Not Recovered/Not Resolved]
  - Pulmonary arterial hypertension [Unknown]
  - Diarrhoea [Not Recovered/Not Resolved]
  - Hospitalisation [Unknown]
  - Dyspnoea [Unknown]
  - Dyspnoea exertional [Not Recovered/Not Resolved]

NARRATIVE: CASE EVENT DATE: 20180425
